FAERS Safety Report 7674049-X (Version None)
Quarter: 2011Q3

REPORT INFORMATION
  Report Type: 
  Country: None (occurrence: None)
  Receive Date: 20110810
  Receipt Date: 20110803
  Transmission Date: 20111222
  Serious: Yes (Life-Threatening, Other)
  Sender: FDA-Public Use
  Company Number: US-JNJFOC-20110707676

PATIENT
  Age: 54 Year
  Sex: Female
  Weight: 68.04 kg

DRUGS (1)
  1. NUCYNTA [Suspect]
     Indication: PAIN
     Dosage: 3XDAY
     Route: 048
     Dates: start: 20101001, end: 20101014

REACTIONS (7)
  - APHASIA [None]
  - HYPERTENSION [None]
  - HALLUCINATION, VISUAL [None]
  - DISORIENTATION [None]
  - PUPILLARY REFLEX IMPAIRED [None]
  - CONFUSIONAL STATE [None]
  - MUSCLE SPASMS [None]
